FAERS Safety Report 19293220 (Version 2)
Quarter: 2021Q2

REPORT INFORMATION
  Report Type: Report from Study
  Country: US (occurrence: US)
  Receive Date: 20210524
  Receipt Date: 20210625
  Transmission Date: 20210717
  Serious: Yes (Death, Hospitalization, Other)
  Sender: FDA-Public Use
  Company Number: US-ACADIA PHARMACEUTICALS INC.-ACA-2021-PIM-001830

PATIENT
  Sex: Male

DRUGS (16)
  1. NUPLAZID [Suspect]
     Active Substance: PIMAVANSERIN TARTRATE
     Indication: PARKINSON^S DISEASE
     Dosage: 34 MILLIGRAM, QD
     Route: 048
     Dates: start: 202001, end: 202104
  2. NUPLAZID [Suspect]
     Active Substance: PIMAVANSERIN TARTRATE
     Indication: HALLUCINATION
  3. ESCITALOPRAM [Concomitant]
     Active Substance: ESCITALOPRAM OXALATE
  4. NUPLAZID [Suspect]
     Active Substance: PIMAVANSERIN TARTRATE
     Indication: DELUSION
  5. VALSARTAN. [Concomitant]
     Active Substance: VALSARTAN
  6. FLOMAX [MORNIFLUMATE] [Concomitant]
     Active Substance: MORNIFLUMATE
  7. MAGNESIUM [Concomitant]
     Active Substance: MAGNESIUM
  8. ARICEPT [Concomitant]
     Active Substance: DONEPEZIL HYDROCHLORIDE
  9. ENOXAPARIN [Concomitant]
     Active Substance: ENOXAPARIN
  10. NITROSTAT [Concomitant]
     Active Substance: NITROGLYCERIN
  11. WELLBUTRIN [Concomitant]
     Active Substance: BUPROPION HYDROCHLORIDE
  12. ASPIRIN 81 [Concomitant]
     Active Substance: ASPIRIN
  13. DIGOXIN. [Concomitant]
     Active Substance: DIGOXIN
  14. WARFARIN [Concomitant]
     Active Substance: WARFARIN
  15. ATORVASTATIN [Concomitant]
     Active Substance: ATORVASTATIN
  16. LOSARTAN POTASSIUM. [Concomitant]
     Active Substance: LOSARTAN POTASSIUM

REACTIONS (1)
  - Haemorrhage intracranial [Recovered/Resolved]
